FAERS Safety Report 19717118 (Version 2)
Quarter: 2021Q3

REPORT INFORMATION
  Report Type: Report from Study
  Country: None (occurrence: CA)
  Receive Date: 20210818
  Receipt Date: 20210823
  Transmission Date: 20211014
  Serious: Yes (Other)
  Sender: FDA-Public Use
  Company Number: CA-ABBVIE-21K-028-4018194-00

PATIENT
  Sex: Male

DRUGS (2)
  1. HUMIRA [Suspect]
     Active Substance: ADALIMUMAB
     Indication: COLITIS ULCERATIVE
     Route: 058
     Dates: start: 20200422, end: 20210728
  2. HUMIRA [Suspect]
     Active Substance: ADALIMUMAB
     Route: 058
     Dates: start: 20210811

REACTIONS (27)
  - Defaecation urgency [Unknown]
  - Rectal discharge [Not Recovered/Not Resolved]
  - Anal incontinence [Not Recovered/Not Resolved]
  - Mobility decreased [Unknown]
  - Emotional distress [Unknown]
  - Post procedural haemorrhage [Unknown]
  - Stoma site pain [Unknown]
  - Postoperative wound complication [Not Recovered/Not Resolved]
  - Fluid intake reduced [Unknown]
  - Crohn^s disease [Unknown]
  - Gastrointestinal disorder [Not Recovered/Not Resolved]
  - Secretion discharge [Recovered/Resolved]
  - Constipation [Unknown]
  - Hypophagia [Unknown]
  - Inguinal hernia [Unknown]
  - Testis discomfort [Unknown]
  - Back pain [Not Recovered/Not Resolved]
  - Stoma complication [Unknown]
  - Gastrointestinal stoma complication [Unknown]
  - Ankle fracture [Unknown]
  - Stoma site discharge [Unknown]
  - Drug ineffective [Not Recovered/Not Resolved]
  - Arthralgia [Not Recovered/Not Resolved]
  - Stoma site haemorrhage [Unknown]
  - Rectal haemorrhage [Not Recovered/Not Resolved]
  - Gait disturbance [Unknown]
  - Stoma site irritation [Unknown]
